FAERS Safety Report 5304044-7 (Version None)
Quarter: 2007Q1

REPORT INFORMATION
  Report Type: 
  Country: None (occurrence: None)
  Receive Date: 20070201
  Receipt Date: 20061110
  Transmission Date: 20070707
  Serious: No
  Sender: FDA-Public Use
  Company Number: 2006PV025072

PATIENT
  Age: 74 Year
  Sex: Female
  Weight: 113.8529 kg

DRUGS (9)
  1. BYETTA [Suspect]
     Indication: DIABETES MELLITUS NON-INSULIN-DEPENDENT
     Dosage: 5 MCG; BID;SC
     Route: 058
     Dates: start: 20061107
  2. METFORMIN HCL [Concomitant]
  3. FISH OIL [Concomitant]
  4. EVENING PRIMROSE OIL [Concomitant]
  5. SELENIUM SULFIDE [Concomitant]
  6. VITAMIN B-12 [Concomitant]
  7. CHROMIUM [Concomitant]
  8. IODINE [Concomitant]
  9. METFORMIN HCL [Concomitant]

REACTIONS (6)
  - CONSTIPATION [None]
  - DECREASED APPETITE [None]
  - DIARRHOEA [None]
  - FREQUENT BOWEL MOVEMENTS [None]
  - NAUSEA [None]
  - WEIGHT DECREASED [None]
